FAERS Safety Report 20535215 (Version 1)
Quarter: 2022Q1

REPORT INFORMATION
  Report Type: Other
  Country: AT (occurrence: AT)
  Receive Date: 20220302
  Receipt Date: 20220302
  Transmission Date: 20220423
  Serious: Yes (Hospitalization, Other)
  Sender: FDA-Public Use
  Company Number: AT-CELLTRION INC.-2022AT002159

PATIENT

DRUGS (17)
  1. TRASTUZUMAB [Suspect]
     Active Substance: TRASTUZUMAB
     Indication: HER2 positive breast cancer
     Dosage: 8 MG/KG, Q3W - EVERY 3 WEEKS (MOST RECENT DATE OF DRUG ADMINISTRATION PRIOR TO AE: 06/SEP/2019 AND 2
     Route: 041
     Dates: start: 20161020
  2. TUCATINIB [Suspect]
     Active Substance: TUCATINIB
     Indication: HER2 positive breast cancer
     Dosage: 300 MG, B.I.D. - TWICE DAILY
     Route: 048
     Dates: start: 20210430
  3. CYCLOPHOSPHAMIDE [Suspect]
     Active Substance: CYCLOPHOSPHAMIDE
     Indication: HER2 positive breast cancer
     Dosage: 500 MG/M2 (OTHER)
     Route: 042
     Dates: start: 20161005, end: 20161005
  4. EPIRUBICIN [Suspect]
     Active Substance: EPIRUBICIN
     Indication: HER2 positive breast cancer
     Dosage: 100 MG/M2 (MOST RECENT DATE OF DRUG ADMINISTRATION PRIOR TO AE: 05/OCT/2016)
     Route: 042
     Dates: start: 20161005
  5. PERTUZUMAB [Suspect]
     Active Substance: PERTUZUMAB
     Indication: HER2 positive breast cancer
     Dosage: 840 MG, Q3W - EVERY 3 WEEKS (MOST RECENT DATE OF DRUG ADMINISTRATION PRIOR TO AE: 06/SEP/2019 AND 20
     Route: 042
     Dates: start: 20161020
  6. ADO-TRASTUZUMAB EMTANSINE [Suspect]
     Active Substance: ADO-TRASTUZUMAB EMTANSINE
     Indication: HER2 positive breast cancer
     Dosage: 3.6 MG/KG, Q3W - EVERY 3 WEEKS (MOST RECENT DATE OF DRUG ADMINISTRATION PRIOR TO AE: 16/AUG/2019)
     Route: 042
     Dates: start: 20180205
  7. DOCETAXEL [Suspect]
     Active Substance: DOCETAXEL
     Indication: HER2 positive breast cancer
     Dosage: 75 MG/M2, Q3W - EVERY 3 WEEKS (MOST RECENT DATE OF DRUG ADMINISTRATION PRIOR TO AE: 12/JAN/2017 AND
     Route: 042
     Dates: start: 20161020
  8. XGEVA [Concomitant]
     Active Substance: DENOSUMAB
     Dosage: ONGOING = CHECKED
     Dates: start: 20161201
  9. DEXIBUPROFEN [Concomitant]
     Active Substance: DEXIBUPROFEN
     Dosage: ONGOING = CHECKED
     Dates: start: 20210312
  10. ENTEROBENE [Concomitant]
     Indication: Diarrhoea
     Dosage: ONGOING = CHECKED
     Dates: start: 20171127
  11. SUCRALAN [Concomitant]
     Dosage: ONGOING = NOT CHECKED
  12. BISOPROLOL FUMARATE [Concomitant]
     Active Substance: BISOPROLOL FUMARATE
     Dosage: ONGOING = CHECKED
     Dates: start: 20170227
  13. VITAMINS WITH MINERALS [Concomitant]
     Active Substance: MINERALS\VITAMINS
     Dosage: ONGOING = CHECKED
     Dates: start: 20161112
  14. SERTRALINE HYDROCHLORIDE [Concomitant]
     Active Substance: SERTRALINE HYDROCHLORIDE
     Dosage: ONGOING = CHECKED
     Dates: start: 20171016
  15. HYDROMORPHONE HYDROCHLORIDE [Concomitant]
     Active Substance: HYDROMORPHONE HYDROCHLORIDE
     Dosage: ONGOING = CHECKED
     Dates: start: 20210410
  16. ONDANSETRON HYDROCHLORIDE [Concomitant]
     Active Substance: ONDANSETRON HYDROCHLORIDE
     Indication: Nausea
     Dosage: ONGOING = CHECKED
     Dates: start: 20181105
  17. RAMIPRIL [Concomitant]
     Active Substance: RAMIPRIL
     Dosage: ONGOING = CHECKED
     Dates: start: 20170227

REACTIONS (1)
  - Epilepsy [Unknown]

NARRATIVE: CASE EVENT DATE: 20220131
